FAERS Safety Report 6384998-0 (Version None)
Quarter: 2009Q4

REPORT INFORMATION
  Report Type: 
  Country: None (occurrence: None)
  Receive Date: 20091002
  Receipt Date: 20090921
  Transmission Date: 20100525
  Serious: Yes (Other)
  Sender: FDA-Public Use
  Company Number: US-ROCHE-658098

PATIENT
  Sex: Female
  Weight: 77.1 kg

DRUGS (3)
  1. PEGASYS [Suspect]
     Indication: HEPATITIS C
     Dosage: FORM: PRE-FILLED SYRINGE
     Route: 065
     Dates: start: 20090223
  2. COPEGUS [Suspect]
     Indication: HEPATITIS C
     Dosage: DIVIDED DOSES; MISSED SEVERAL EVENING DOSES IN BETWEEN
     Route: 065
     Dates: start: 20090223
  3. EFFEXOR [Concomitant]
     Indication: PROPHYLAXIS

REACTIONS (13)
  - ALOPECIA [None]
  - CAPILLARY DISORDER [None]
  - COUGH [None]
  - DRY MOUTH [None]
  - HEADACHE [None]
  - HEPATIC NEOPLASM [None]
  - INSOMNIA [None]
  - NAUSEA [None]
  - PRURITUS [None]
  - PYREXIA [None]
  - RESPIRATORY TRACT CONGESTION [None]
  - THIRST [None]
  - VISION BLURRED [None]
